FAERS Safety Report 17182343 (Version 2)
Quarter: 2019Q4

REPORT INFORMATION
  Report Type: Spontaneous
  Country: US (occurrence: US)
  Receive Date: 20191219
  Receipt Date: 20191223
  Transmission Date: 20200122
  Serious: Yes (Hospitalization, Other)
  Sender: FDA-Public Use
  Company Number: US-PFIZER INC-2019546275

PATIENT
  Age: 52 Year
  Sex: Male
  Weight: 58.51 kg

DRUGS (1)
  1. TESTOSTERONE CIPIONATE [Suspect]
     Active Substance: TESTOSTERONE
     Indication: SPINAL CORD INJURY
     Dosage: 1ML INTRAMUSCULAR INJECTION EVERY OTHER WEEK OR EVERY WEEK; BUT USUALLY EVERY OTHER WEEK
     Route: 030

REACTIONS (7)
  - Malaise [Unknown]
  - Weight decreased [Unknown]
  - Poor quality product administered [Unknown]
  - Bronchitis [Unknown]
  - Respiratory disorder [Unknown]
  - Infection [Unknown]
  - Product complaint [Unknown]
